FAERS Safety Report 10033006 (Version 3)
Quarter: 2014Q2

REPORT INFORMATION
  Report Type: Spontaneous
  Country: US (occurrence: US)
  Receive Date: 20140324
  Receipt Date: 20140512
  Transmission Date: 20141212
  Serious: Yes (Hospitalization)
  Sender: FDA-Public Use
  Company Number: US-SA-2014SA033442

PATIENT
  Age: 39 Year
  Sex: Female

DRUGS (1)
  1. AUBAGIO [Suspect]
     Indication: MULTIPLE SCLEROSIS
     Route: 048
     Dates: start: 201303, end: 20130920

REACTIONS (9)
  - Respiration abnormal [Unknown]
  - Renal failure acute [Recovered/Resolved]
  - Acute hepatic failure [Recovered/Resolved]
  - Drug dose omission [Unknown]
  - Rhabdomyolysis [Recovered/Resolved]
  - Muscle disorder [Unknown]
  - Fall [Unknown]
  - Loss of consciousness [Unknown]
  - Unresponsive to stimuli [Unknown]
